FAERS Safety Report 4501142-2 (Version None)
Quarter: 2004Q4

REPORT INFORMATION
  Report Type: 
  Country: None (occurrence: None)
  Receive Date: 20041110
  Receipt Date: 20041028
  Transmission Date: 20050328
  Serious: Yes (Hospitalization)
  Sender: FDA-Public Use
  Company Number: 2004085776

PATIENT
  Age: 30 Year
  Sex: Male

DRUGS (4)
  1. GEODON [Suspect]
     Indication: BIPOLAR DISORDER
     Dosage: 80 MG (20 MG, 4 IN 1 D)
  2. ESCITALOPRAM (ESCITALOPRAM) [Concomitant]
  3. LORAZEPAM [Concomitant]
  4. URSODEOXYCHOLIC ACID (URSODEOXYCHOLIC ACID) [Concomitant]

REACTIONS (6)
  - AGGRESSION [None]
  - DRUG INEFFECTIVE [None]
  - FATIGUE [None]
  - HEPATIC ENZYME INCREASED [None]
  - HYPERSOMNIA [None]
  - MENTAL IMPAIRMENT [None]
